FAERS Safety Report 13272292 (Version 1)
Quarter: 2017Q1

REPORT INFORMATION
  Report Type: Spontaneous
  Country: NL (occurrence: NL)
  Receive Date: 20170227
  Receipt Date: 20170227
  Transmission Date: 20170428
  Serious: Yes (Other)
  Sender: FDA-Public Use
  Company Number: NL-ALLERGAN-1706745US

PATIENT
  Sex: Male

DRUGS (2)
  1. BUPRENORPHINE. [Suspect]
     Active Substance: BUPRENORPHINE
     Indication: PAIN
     Route: 042
  2. MILNACIPRAN UNK [Suspect]
     Active Substance: MILNACIPRAN
     Indication: PAIN
     Dosage: UNK UNK, BID
     Route: 048

REACTIONS (5)
  - Paraesthesia [Unknown]
  - Dyspnoea [Unknown]
  - Palpitations [Unknown]
  - Dizziness [Unknown]
  - Urinary hesitation [Unknown]
